FAERS Safety Report 16786431 (Version 1)
Quarter: 2019Q3

REPORT INFORMATION
  Report Type: Spontaneous
  Country: JP (occurrence: JP)
  Receive Date: 20190909
  Receipt Date: 20190909
  Transmission Date: 20191005
  Serious: Yes (Other)
  Sender: FDA-Public Use
  Company Number: JP-BAUSCH-BL-2019-025258

PATIENT
  Age: 74 Year
  Sex: Male

DRUGS (5)
  1. LATANOPROST. [Suspect]
     Active Substance: LATANOPROST
     Indication: GLAUCOMA DRUG THERAPY
     Dosage: IN BOTH EYES
     Route: 061
  2. SANCOBA [Concomitant]
     Active Substance: CYANOCOBALAMIN
     Indication: ASTHENOPIA
     Route: 061
  3. LUMIGAN [Interacting]
     Active Substance: BIMATOPROST
     Indication: GLAUCOMA DRUG THERAPY
     Dosage: IN BOTH EYES
     Route: 061
  4. ALPHAGAN P [Interacting]
     Active Substance: BRIMONIDINE TARTRATE
     Indication: GLAUCOMA DRUG THERAPY
     Dosage: OPHTHALMIC SOLUTION IN BOTH EYES
     Route: 061
  5. COSOPT [Interacting]
     Active Substance: DORZOLAMIDE HYDROCHLORIDE\TIMOLOL MALEATE
     Indication: GLAUCOMA DRUG THERAPY
     Dosage: IN BOTH EYES
     Route: 061

REACTIONS (8)
  - Drug hypersensitivity [Unknown]
  - Keratitis interstitial [Unknown]
  - Corneal opacity [Recovering/Resolving]
  - Conjunctival hyperaemia [Unknown]
  - Conjunctivitis [Unknown]
  - Corneal neovascularisation [Recovering/Resolving]
  - Corneal infiltrates [Unknown]
  - Drug interaction [Recovering/Resolving]
